FAERS Safety Report 16627261 (Version 3)
Quarter: 2019Q4

REPORT INFORMATION
  Report Type: Report from Study
  Country: BR (occurrence: BR)
  Receive Date: 20190724
  Receipt Date: 20191126
  Transmission Date: 20200122
  Serious: Yes (Other)
  Sender: FDA-Public Use
  Company Number: PHHY2018BR175679

PATIENT
  Age: 12 Year
  Sex: Female
  Weight: 40 kg

DRUGS (4)
  1. OMNITROPE [Suspect]
     Active Substance: SOMATROPIN
     Indication: GROWTH HORMONE DEFICIENCY
     Dosage: 1.9 MG, QHS (AMPOULE)
     Route: 058
     Dates: start: 201808
  2. OMNITROPE [Suspect]
     Active Substance: SOMATROPIN
     Dosage: 2 MG, QD
     Route: 058
  3. OMNITROPE [Suspect]
     Active Substance: SOMATROPIN
     Dosage: 2 DF, UNK
     Route: 065
  4. OMNITROPE [Suspect]
     Active Substance: SOMATROPIN
     Dosage: UNK
     Route: 065

REACTIONS (7)
  - Injection site pain [Unknown]
  - Injection site discolouration [Unknown]
  - Injection site bruising [Unknown]
  - Migraine [Unknown]
  - Musculoskeletal discomfort [Unknown]
  - Cyst [Unknown]
  - Fall [Unknown]

NARRATIVE: CASE EVENT DATE: 20190617
